FAERS Safety Report 6701968-0 (Version None)
Quarter: 2010Q2

REPORT INFORMATION
  Report Type: 
  Country: None (occurrence: None)
  Receive Date: 20100427
  Receipt Date: 20100413
  Transmission Date: 20101027
  Serious: Yes (Hospitalization)
  Sender: FDA-Public Use
  Company Number: 8048117

PATIENT
  Sex: Female
  Weight: 55.5 kg

DRUGS (11)
  1. CERTOLIZUMAB PEGOL [Suspect]
     Indication: RHEUMATOID ARTHRITIS
     Dosage: 400 MG, - NR OF DOSES :3 SUBCUTANEOUS, SUBCUTANOUES
     Route: 058
     Dates: start: 20090316, end: 20090413
  2. CERTOLIZUMAB PEGOL [Suspect]
     Indication: RHEUMATOID ARTHRITIS
     Dosage: 400 MG, - NR OF DOSES :3 SUBCUTANEOUS, SUBCUTANOUES
     Route: 058
     Dates: start: 20090427
  3. METHOTREXATE [Concomitant]
  4. VITAMIN B-12 [Concomitant]
  5. FOLIC ACID [Concomitant]
  6. PREDNISONE [Concomitant]
  7. IBUPROFEN [Concomitant]
  8. RANITIDINE [Concomitant]
  9. ASPERCREME [Concomitant]
  10. SUDAFED S.A. [Concomitant]
  11. TRIAMCINOLONE [Concomitant]

REACTIONS (7)
  - BLOOD CALCIUM DECREASED [None]
  - CULTURE URINE POSITIVE [None]
  - ESCHERICHIA INFECTION [None]
  - HAEMOGLOBIN DECREASED [None]
  - LYMPHOCYTE COUNT DECREASED [None]
  - PYELONEPHRITIS [None]
  - RED BLOOD CELL COUNT DECREASED [None]
